FAERS Safety Report 15209533 (Version 1)
Quarter: 2018Q4

REPORT INFORMATION
  Report Type: Spontaneous
  Country: US (occurrence: US)
  Receive Date: 20180727
  Receipt Date: 20180727
  Transmission Date: 20190204
  Serious: No
  Sender: FDA-Public Use
  Company Number: US-DUCHESNAY INC.-2052848

PATIENT
  Age: 85 Year
  Sex: Female

DRUGS (2)
  1. BYBREC [Concomitant]
  2. OSPHENA [Suspect]
     Active Substance: OSPEMIFENE
     Route: 048
     Dates: start: 20180610, end: 20180616

REACTIONS (2)
  - Hot flush [Recovered/Resolved]
  - Off label use [Recovered/Resolved]

NARRATIVE: CASE EVENT DATE: 20180610
